FAERS Safety Report 5167914-9 (Version None)
Quarter: 2006Q4

REPORT INFORMATION
  Report Type: 
  Country: None (occurrence: None)
  Receive Date: 20061208
  Receipt Date: 20061127
  Transmission Date: 20070319
  Serious: Yes (Hospitalization)
  Sender: FDA-Public Use
  Company Number: GR-AMGEN-UK201671

PATIENT
  Age: 65 Year
  Sex: Female

DRUGS (6)
  1. NEULASTA [Suspect]
     Indication: CHEMOTHERAPY
  2. LENOGRASTIM [Concomitant]
  3. ERYTHROPOIETIN HUMAN [Concomitant]
     Route: 058
  4. CYCLOPHOSPHAMIDE [Concomitant]
     Route: 048
  5. DEXAMETHASONE [Concomitant]
     Route: 048
  6. THALIDOMIDE [Concomitant]

REACTIONS (5)
  - ANAEMIA [None]
  - CONSTIPATION [None]
  - SPLENIC HAEMATOMA [None]
  - SPLENOMEGALY [None]
  - THROMBOCYTOPENIA [None]
